FAERS Safety Report 23787263 (Version 1)
Quarter: 2024Q2

REPORT INFORMATION
  Report Type: Spontaneous
  Country: CH (occurrence: CH)
  Receive Date: 20240426
  Receipt Date: 20240426
  Transmission Date: 20240716
  Serious: Yes (Hospitalization)
  Sender: FDA-Public Use
  Company Number: None

PATIENT

DRUGS (1)
  1. GRAZAX [Suspect]
     Active Substance: PHLEUM PRATENSE POLLEN
     Indication: Seasonal allergy
     Dosage: 75000 SQ-T
     Route: 060
     Dates: start: 20231222, end: 20240125

REACTIONS (9)
  - Pruritus [Recovering/Resolving]
  - Confusional state [Recovered/Resolved]
  - Somnolence [Recovered/Resolved]
  - Psychomotor skills impaired [Recovered/Resolved]
  - Headache [Recovered/Resolved]
  - Dizziness [Unknown]
  - Lethargy [Recovered/Resolved]
  - Psychomotor skills impaired [Recovered/Resolved]
  - Disorientation [Recovered/Resolved]

NARRATIVE: CASE EVENT DATE: 20240101
